FAERS Safety Report 9328238 (Version 2)
Quarter: 2013Q2

REPORT INFORMATION
  Report Type: Spontaneous
  Country: US (occurrence: US)
  Receive Date: 20130604
  Receipt Date: 20130604
  Transmission Date: 20140414
  Serious: No
  Sender: FDA-Public Use
  Company Number: US-MYLANLABS-2013S1010639

PATIENT
  Sex: Female
  Weight: 68.04 kg

DRUGS (1)
  1. PIOGLITAZONE TABLETS USP [Suspect]
     Indication: DIABETES MELLITUS
     Route: 048

REACTIONS (1)
  - Oedema [Recovered/Resolved]
